FAERS Safety Report 14918130 (Version 1)
Quarter: 2018Q2

REPORT INFORMATION
  Report Type: Spontaneous
  Country: US (occurrence: US)
  Receive Date: 20180502
  Receipt Date: 20180502
  Transmission Date: 20180711
  Serious: No
  Sender: FDA-Public Use
  Company Number: None

PATIENT
  Age: 36 Year
  Sex: Female
  Weight: 89.81 kg

DRUGS (1)
  1. MIRENA [Suspect]
     Active Substance: LEVONORGESTREL

REACTIONS (8)
  - Ectopic pregnancy [None]
  - Pelvic pain [None]
  - Product label issue [None]
  - Pregnancy test positive [None]
  - Pregnancy with contraceptive device [None]
  - Pyrexia [None]
  - Product quality issue [None]
  - Abortion threatened [None]

NARRATIVE: CASE EVENT DATE: 20170406
